FAERS Safety Report 17654269 (Version 2)
Quarter: 2020Q2

REPORT INFORMATION
  Report Type: Report from Study
  Country: IT (occurrence: IT)
  Receive Date: 20200410
  Receipt Date: 20200423
  Transmission Date: 20200713
  Serious: Yes (Death)
  Sender: FDA-Public Use
  Company Number: IT-ROCHE-2577083

PATIENT
  Sex: Male

DRUGS (5)
  1. MORPHINE [Concomitant]
     Active Substance: MORPHINE
     Route: 058
  2. LUVION [CANRENONE] [Concomitant]
     Active Substance: CANRENONE
     Dosage: PER OS
     Route: 065
  3. LASIX [Concomitant]
     Active Substance: FUROSEMIDE
  4. TOCILIZUMAB. [Suspect]
     Active Substance: TOCILIZUMAB
     Indication: CORONAVIRUS INFECTION
     Dosage: ON 25/MAR/2020, HE RECEIVED LAST DOSE OF TOCILIZUMAB PRIOR TO ONSET OF MULTIORGAN FAILURE.
     Route: 042
  5. CLEXANE [Concomitant]
     Active Substance: ENOXAPARIN SODIUM

REACTIONS (1)
  - Multiple organ dysfunction syndrome [Fatal]

NARRATIVE: CASE EVENT DATE: 20200328
